FAERS Safety Report 20590670 (Version 1)
Quarter: 2022Q1

REPORT INFORMATION
  Report Type: Spontaneous
  Country: US (occurrence: None)
  Receive Date: 20220314
  Receipt Date: 20220314
  Transmission Date: 20220423
  Serious: Yes (Other)
  Sender: FDA-Public Use
  Company Number: None

PATIENT
  Age: 85 Year
  Sex: Female
  Weight: 44.0 kg

DRUGS (8)
  1. PROLIA [Suspect]
     Active Substance: DENOSUMAB
     Dosage: OTHER FREQUENCY : 6 MONTHS;?OTHER ROUTE : INJECTION AT MEDICAL CLINIC;?FOR 10-14 DAYS AFTER TREATMEN
     Route: 050
     Dates: start: 20201118, end: 20210510
  2. VAGIFEM [Concomitant]
     Active Substance: ESTRADIOL
  3. MULTI-VITAMIN [Concomitant]
     Active Substance: .ALPHA.-TOCOPHEROL ACETATE, DL-\ASCORBIC ACID\CYANOCOBALAMIN\FLUORIDE ION\FOLIC ACID\NIACIN\PYRIDOXI
  4. RESVERATROL [Concomitant]
  5. ALFAFALFA [Concomitant]
  6. CALCIUM + MNERALS [Concomitant]
  7. VITAMIN D [Concomitant]
     Active Substance: VITAMIN D NOS
  8. PROBIOTICS [Concomitant]

REACTIONS (2)
  - Muscle spasms [None]
  - Dysuria [None]

NARRATIVE: CASE EVENT DATE: 20210513
